FAERS Safety Report 10607366 (Version 1)
Quarter: 2014Q4

REPORT INFORMATION
  Report Type: Spontaneous
  Country: US (occurrence: None)
  Receive Date: 20141124
  Receipt Date: 20141124
  Transmission Date: 20150529
  Serious: Yes (Hospitalization)
  Sender: FDA-Public Use
  Company Number: None

PATIENT
  Age: 59 Year
  Sex: Female
  Weight: 107.1 kg

DRUGS (19)
  1. OMEPRAZOLE. [Concomitant]
     Active Substance: OMEPRAZOLE
  2. PREDNISONE. [Concomitant]
     Active Substance: PREDNISONE
  3. CA + VIT D [Concomitant]
  4. LISINOPRIL. [Concomitant]
     Active Substance: LISINOPRIL
  5. VITAMIN D [Concomitant]
     Active Substance: CHOLECALCIFEROL
  6. NAPROSYN [Concomitant]
     Active Substance: NAPROXEN
  7. LOVASTATIN. [Concomitant]
     Active Substance: LOVASTATIN
  8. MVI [Concomitant]
     Active Substance: VITAMINS
  9. LASIX [Concomitant]
     Active Substance: FUROSEMIDE
  10. RANITIDINE [Concomitant]
     Active Substance: RANITIDINE\RANITIDINE HYDROCHLORIDE
  11. IMURAN [Suspect]
     Active Substance: AZATHIOPRINE
     Dosage: CHRONIC WITH RECENT STOP/RESUME, 50MG, DAILY, PO?
     Route: 048
  12. METFORMIN [Concomitant]
     Active Substance: METFORMIN HYDROCHLORIDE
  13. ZOFRAN [Concomitant]
     Active Substance: ONDANSETRON HYDROCHLORIDE
  14. PYRIDOSTIGMINE [Concomitant]
     Active Substance: PYRIDOSTIGMINE
  15. BACLOFEN. [Concomitant]
     Active Substance: BACLOFEN
  16. OMEGA 3 [Concomitant]
     Active Substance: OMEGA-3 FATTY ACIDS
  17. AMONTADINE [Concomitant]
  18. ASA [Concomitant]
     Active Substance: ASPIRIN
  19. CYANOCOBALAMIN. [Concomitant]
     Active Substance: CYANOCOBALAMIN

REACTIONS (8)
  - Asthenia [None]
  - Alanine aminotransferase increased [None]
  - Pyrexia [None]
  - Liver function test abnormal [None]
  - Toxicity to various agents [None]
  - Aspartate aminotransferase increased [None]
  - Pancytopenia [None]
  - Jaundice [None]

NARRATIVE: CASE EVENT DATE: 20140319
